FAERS Safety Report 8469367-1 (Version None)
Quarter: 2012Q2

REPORT INFORMATION
  Report Type: 
  Country: None (occurrence: None)
  Receive Date: 20120621
  Receipt Date: 20120621
  Transmission Date: 20120825
  Serious: Yes (Life-Threatening, Disabling)
  Sender: FDA-Public Use
  Company Number: None

PATIENT
  Age: 45 Year
  Sex: Female
  Weight: 56.6996 kg

DRUGS (2)
  1. CIMZIA [Suspect]
     Indication: RHEUMATOID ARTHRITIS
     Dosage: 2 SHOTS ONCE PER MONTH SUBCUTANEOUS
     Route: 058
     Dates: start: 20101217
  2. CIMZIA [Suspect]
     Indication: RHEUMATOID ARTHRITIS
     Dosage: 2 SHOTS ONCE PER MONTH SUBCUTANEOUS
     Route: 058
     Dates: start: 20090413

REACTIONS (2)
  - LUNG ADENOCARCINOMA STAGE IV [None]
  - MALIGNANT PLEURAL EFFUSION [None]
